FAERS Safety Report 5555935-3 (Version None)
Quarter: 2007Q4

REPORT INFORMATION
  Report Type: 
  Country: None (occurrence: None)
  Receive Date: 20071213
  Receipt Date: 20071203
  Transmission Date: 20080405
  Serious: Yes (Hospitalization, Other)
  Sender: FDA-Public Use
  Company Number: DE-ABBOTT-07P-062-0426949-00

PATIENT
  Sex: Female

DRUGS (9)
  1. FENOFIBRATE [Suspect]
     Indication: DRUG USE FOR UNKNOWN INDICATION
     Route: 048
     Dates: end: 20070704
  2. ACETAMINOPHEN W/ PROPOXYPHENE HCL [Suspect]
     Indication: DRUG USE FOR UNKNOWN INDICATION
     Route: 048
     Dates: end: 20070704
  3. GLIMEPIRIDE [Suspect]
     Indication: TYPE 2 DIABETES MELLITUS
     Route: 048
     Dates: end: 20070707
  4. GLIMEPIRIDE [Suspect]
     Route: 048
     Dates: start: 20070707, end: 20070710
  5. GLIMEPIRIDE [Suspect]
     Route: 048
     Dates: start: 20070711, end: 20070712
  6. RANITIDINE HYDROCHLORIDE [Suspect]
     Indication: TYPE 2 DIABETES MELLITUS
     Route: 048
     Dates: end: 20070804
  7. ACARBOSE [Concomitant]
     Indication: TYPE 2 DIABETES MELLITUS
     Route: 048
  8. DONEPEZIL HCL [Concomitant]
     Indication: DEMENTIA ALZHEIMER'S TYPE
     Route: 048
     Dates: end: 20070712
  9. DIOVAN HCT [Concomitant]
     Indication: DRUG USE FOR UNKNOWN INDICATION
     Route: 048

REACTIONS (4)
  - ABDOMINAL PAIN UPPER [None]
  - DISORIENTATION [None]
  - DISTURBANCE IN ATTENTION [None]
  - HYPOGLYCAEMIC COMA [None]
